FAERS Safety Report 14252340 (Version 10)
Quarter: 2019Q2

REPORT INFORMATION
  Report Type: Report from Study
  Country: US (occurrence: US)
  Receive Date: 20171205
  Receipt Date: 20190418
  Transmission Date: 20190711
  Serious: Yes (Hospitalization, Other)
  Sender: FDA-Public Use
  Company Number: US-SA-2017SA207805

PATIENT
  Age: 62 Year
  Sex: Female
  Weight: 54.6 kg

DRUGS (48)
  1. ASPIRIN (E.C.) [Concomitant]
     Active Substance: ASPIRIN
     Dosage: 81 MG,QD
     Route: 048
  2. ALBUTEROL;IPRATROPIUM [Concomitant]
     Dosage: 3 ML,QID
     Route: 055
  3. VALTREX [Concomitant]
     Active Substance: VALACYCLOVIR HYDROCHLORIDE
     Dosage: 1000 MG,QD
     Route: 048
  4. AMBIEN [Concomitant]
     Active Substance: ZOLPIDEM TARTRATE
     Dosage: 5 MG; NIGHTLY AS NEEDED
     Route: 048
  5. ALLEGRA [Concomitant]
     Active Substance: FEXOFENADINE HYDROCHLORIDE
     Dosage: 180 MG, QD
     Route: 048
  6. GINKGO BILOBA [Concomitant]
     Active Substance: GINKGO
     Dosage: 60 MG, QD
     Route: 048
  7. ALEMTUZUMAB [Suspect]
     Active Substance: ALEMTUZUMAB
     Indication: MULTIPLE SCLEROSIS RELAPSE
     Dosage: 12 MG,UNK
     Route: 041
     Dates: start: 20170925, end: 20170929
  8. METHYLPREDNISOLONE. [Concomitant]
     Active Substance: METHYLPREDNISOLONE
     Dosage: UNK UNK,UNK
     Route: 065
  9. PARACETAMOL [Concomitant]
     Active Substance: ACETAMINOPHEN
     Dosage: 650 MG,UNK
     Route: 048
     Dates: end: 20171023
  10. VOLTAREN [DICLOFENAC] [Concomitant]
     Active Substance: DICLOFENAC SODIUM
     Dosage: 25 MG,UNK
     Route: 048
  11. FAMOTIDINE. [Concomitant]
     Active Substance: FAMOTIDINE
     Dosage: 20 MG,QD
     Route: 048
  12. MUCINEX [Concomitant]
     Active Substance: GUAIFENESIN
     Dosage: 600 MG,BID
     Route: 048
  13. HEPARINE [HEPARIN] [Concomitant]
     Dosage: 5000 DF,UNK
     Route: 058
  14. ZANAFLEX [Concomitant]
     Active Substance: TIZANIDINE HYDROCHLORIDE
     Dosage: 4 MG; NIGHTLY
     Route: 048
  15. AUGMENTIN BD [Concomitant]
     Active Substance: AMOXICILLIN\CLAVULANIC ACID
     Dosage: 875 MG, BID
     Route: 048
  16. ROXICODONE [Concomitant]
     Active Substance: OXYCODONE HYDROCHLORIDE
     Dosage: 5-10 MG, Q4H
     Route: 048
  17. GLICLAZIDE [Concomitant]
     Active Substance: GLICLAZIDE
     Dosage: 10 MG,QD
     Route: 048
  18. CEPHAELIS SPP. FLUID EXTRACT;CHLOROFORM;CITRIC ACID;CODEINE PHOSPHATE; [Concomitant]
     Dosage: 5 ML,UNK
     Route: 048
  19. SODIUM CHLORIDE. [Concomitant]
     Active Substance: SODIUM CHLORIDE
     Dosage: 75 ML/HR; CONTINUOUS
     Route: 042
  20. BIOTIN [Concomitant]
     Active Substance: BIOTIN
     Dosage: 10000 UG, QD
     Route: 048
  21. MYRBETRIQ [Concomitant]
     Active Substance: MIRABEGRON
     Dosage: 50 MG, QD
     Route: 048
  22. OMEGA-3 FATTY ACIDS [Concomitant]
     Active Substance: OMEGA-3 FATTY ACIDS
     Dosage: 1200 MG, QD
     Route: 048
  23. PSYLLIUM HUSKS [Concomitant]
     Active Substance: PSYLLIUM HUSK
     Dosage: 5 DF, QD
     Route: 048
  24. IRON FERROUS SULFATE [Concomitant]
     Dosage: 324 MG, QD
     Route: 048
  25. OSCAL 500-D [Concomitant]
     Dosage: 1 DF,UNK
     Route: 048
  26. NEURONTIN [Concomitant]
     Active Substance: GABAPENTIN
     Dosage: 600 DF, QID
     Route: 048
  27. VITAMIN E [Concomitant]
     Active Substance: .ALPHA.-TOCOPHEROL
     Dosage: 400 IU, QD
     Route: 048
  28. FLOMAX [Concomitant]
     Active Substance: TAMSULOSIN HYDROCHLORIDE
     Dosage: 0.4 MG, QD
     Route: 048
  29. ASCORBIC ACID. [Concomitant]
     Active Substance: ASCORBIC ACID
     Dosage: 250 MG,QD
     Route: 048
  30. ZITHROMAX [Concomitant]
     Active Substance: AZITHROMYCIN DIHYDRATE
     Dosage: UNK UNK,QD
     Route: 042
  31. NEURONTIN [Concomitant]
     Active Substance: GABAPENTIN
     Dosage: 300 MG,TID
     Route: 048
  32. FISH OIL [Concomitant]
     Active Substance: FISH OIL
     Dosage: 1000 MG,UNK
     Route: 048
  33. NORCO [Concomitant]
     Active Substance: ACETAMINOPHEN\HYDROCODONE BITARTRATE
  34. NITROSTAT [Concomitant]
     Active Substance: NITROGLYCERIN
     Dosage: .4 MG,UNK
     Route: 060
  35. ROCEPHIN [Concomitant]
     Active Substance: CEFTRIAXONE SODIUM
     Dosage: 1 G,QD
     Route: 042
  36. COLACE [Concomitant]
     Active Substance: DOCUSATE SODIUM
     Dosage: 100 MG,QD
     Route: 048
  37. VITAMINS NOS [Concomitant]
     Active Substance: VITAMINS
     Dosage: UNK UNK,QD
     Route: 048
  38. PARACETAMOL [Concomitant]
     Active Substance: ACETAMINOPHEN
     Dosage: 650 MG,UNK
     Route: 054
  39. LIORESAL [Concomitant]
     Active Substance: BACLOFEN
     Dosage: 10 MG,TID
     Route: 048
  40. MAG-OX [Concomitant]
     Active Substance: MAGNESIUM OXIDE
     Dosage: 200 MG,UNK
     Route: 048
  41. TOCOPHEROL [Concomitant]
     Active Substance: TOCOPHEROL
     Dosage: 400 DF,QD
     Route: 048
  42. GLUCOSAMINE AND CHONDROITIN [Concomitant]
     Active Substance: CHONDROITIN SULFATE (BOVINE)\GLUCOSAMINE HYDROCHLORIDE
     Dosage: 2 DF, QD
     Route: 048
  43. PLAQUENIL [Concomitant]
     Active Substance: HYDROXYCHLOROQUINE SULFATE
     Dosage: 200 MG, QD
     Route: 048
  44. MORPHINE SULFATE. [Concomitant]
     Active Substance: MORPHINE SULFATE
     Dosage: 2 MG,UNK
     Route: 042
  45. ATROPINE. [Concomitant]
     Active Substance: ATROPINE
     Dosage: .5 MG,UNK
     Route: 042
  46. VITAMIN D3 [Concomitant]
     Active Substance: CHOLECALCIFEROL
     Dosage: 5000 DF,QD
     Route: 048
  47. CULTURELLE [Concomitant]
     Active Substance: LACTOBACILLUS RHAMNOSUS
     Dosage: 1 DF,UNK
     Route: 048
  48. PLANTAGO OVATA [Concomitant]
     Active Substance: HERBALS\PLANTAGO OVATA LEAF
     Dosage: UNK UNK,BID
     Route: 048

REACTIONS (35)
  - Muscular weakness [Recovered/Resolved]
  - Diarrhoea [Recovered/Resolved]
  - Lumbar spinal stenosis [Recovered/Resolved]
  - Tachypnoea [Recovered/Resolved]
  - Decreased appetite [Recovered/Resolved]
  - Pyrexia [Recovered/Resolved]
  - Oedema peripheral [Recovered/Resolved]
  - Dysphonia [Recovered/Resolved]
  - Insomnia [Recovering/Resolving]
  - Dyspnoea exertional [Recovered/Resolved]
  - Hypoxia [Recovered/Resolved]
  - Tachycardia [Recovered/Resolved]
  - Pneumonitis [Recovering/Resolving]
  - Hypokalaemia [Recovered/Resolved]
  - Systemic inflammatory response syndrome [Recovered/Resolved]
  - White blood cell count increased [Recovered/Resolved]
  - Micturition urgency [Recovering/Resolving]
  - Urinary tract infection [Recovered/Resolved]
  - Stress urinary incontinence [Recovered/Resolved]
  - Urinary hesitation [Recovered/Resolved]
  - Pulmonary congestion [Recovered/Resolved]
  - Chills [Recovered/Resolved]
  - Paraesthesia [Recovering/Resolving]
  - Muscle spasms [Not Recovered/Not Resolved]
  - Sepsis [Recovered/Resolved]
  - Dysphagia [Recovered/Resolved]
  - Fall [Recovered/Resolved]
  - Muscular weakness [Recovering/Resolving]
  - Hyponatraemia [Recovered/Resolved]
  - Cough [Recovered/Resolved]
  - Hyperglycaemia [Recovered/Resolved]
  - Pneumonia [Recovered/Resolved]
  - Troponin increased [Recovered/Resolved]
  - Headache [Recovered/Resolved]
  - Fatigue [Recovered/Resolved]

NARRATIVE: CASE EVENT DATE: 20170925
